FAERS Safety Report 7037638-1 (Version None)
Quarter: 2010Q4

REPORT INFORMATION
  Report Type: 
  Country: None (occurrence: None)
  Receive Date: 20101011
  Receipt Date: 20101001
  Transmission Date: 20110411
  Serious: Yes (Hospitalization, Other)
  Sender: FDA-Public Use
  Company Number: PHHO2010MY00910

PATIENT
  Sex: Male
  Weight: 66 kg

DRUGS (2)
  1. CERTICAN [Suspect]
     Indication: METASTATIC RENAL CELL CARCINOMA
     Dosage: 10 MG, QD
     Route: 048
     Dates: start: 20090520
  2. CERTICAN [Suspect]
     Dosage: 10 MG, QD
     Route: 048
     Dates: start: 20090526

REACTIONS (8)
  - ABDOMINAL PAIN [None]
  - ASTHENIA [None]
  - DIARRHOEA [None]
  - FALL [None]
  - MALIGNANT NEOPLASM PROGRESSION [None]
  - MUSCULAR WEAKNESS [None]
  - NECK PAIN [None]
  - PRESYNCOPE [None]
